FAERS Safety Report 16121091 (Version 1)
Quarter: 2019Q1

REPORT INFORMATION
  Report Type: Spontaneous
  Country: US (occurrence: US)
  Receive Date: 20190222
  Receipt Date: 20190222
  Transmission Date: 20190418
  Serious: No
  Sender: FDA-Public Use
  Company Number: None

PATIENT
  Age: 84 Year
  Sex: Male

DRUGS (2)
  1. ABIRATERONE 250 MG TAB [Suspect]
     Active Substance: ABIRATERONE ACETATE
     Dates: start: 201902
  2. PREDISONE [Concomitant]
     Active Substance: PREDNISONE

REACTIONS (2)
  - Abdominal discomfort [None]
  - Pain [None]

NARRATIVE: CASE EVENT DATE: 20190221
